FAERS Safety Report 5367065-4 (Version None)
Quarter: 2007Q2

REPORT INFORMATION
  Report Type: 
  Country: None (occurrence: None)
  Receive Date: 20070622
  Receipt Date: 20070612
  Transmission Date: 20071010
  Serious: Yes (Other)
  Sender: FDA-Public Use
  Company Number: B0475107A

PATIENT
  Age: 48 Year
  Sex: Female

DRUGS (1)
  1. AROPAX [Suspect]
     Route: 048

REACTIONS (10)
  - ABDOMINAL PAIN UPPER [None]
  - ANXIETY [None]
  - DEPRESSED MOOD [None]
  - DRUG DEPENDENCE [None]
  - FEELING HOT AND COLD [None]
  - MOVEMENT DISORDER [None]
  - OBSESSIVE-COMPULSIVE DISORDER [None]
  - PAIN [None]
  - RESTLESSNESS [None]
  - TEARFULNESS [None]
